FAERS Safety Report 6307268-5 (Version None)
Quarter: 2009Q3

REPORT INFORMATION
  Report Type: 
  Country: None (occurrence: None)
  Receive Date: 20090813
  Receipt Date: 20090806
  Transmission Date: 20100115
  Serious: Yes (Hospitalization, Other)
  Sender: FDA-Public Use
  Company Number: US-RANBAXY-2009US-26159

PATIENT

DRUGS (3)
  1. PRAVASTATIN [Suspect]
     Indication: BLOOD CHOLESTEROL INCREASED
     Dosage: UNK, UNK
     Route: 048
     Dates: end: 20090725
  2. LISINOPRIL [Suspect]
     Indication: HYPERTENSION
     Route: 065
  3. SYMLIN [Suspect]
     Indication: DIABETES MELLITUS
     Route: 065

REACTIONS (3)
  - ARTHRALGIA [None]
  - MYALGIA [None]
  - RHABDOMYOLYSIS [None]
